FAERS Safety Report 17434562 (Version 1)
Quarter: 2020Q1

REPORT INFORMATION
  Report Type: Spontaneous
  Country: US (occurrence: US)
  Receive Date: 20200219
  Receipt Date: 20200219
  Transmission Date: 20200409
  Serious: No
  Sender: FDA-Public Use
  Company Number: US-GLAXOSMITHKLINE-US2020AMR024093

PATIENT
  Sex: Female

DRUGS (1)
  1. BUPROPION SR PROLONGED-RELEASE TABLET [Suspect]
     Active Substance: BUPROPION
     Indication: ANTIDEPRESSANT THERAPY
     Dosage: UNK
     Route: 065
     Dates: start: 1996

REACTIONS (1)
  - Drug ineffective [Unknown]
